FAERS Safety Report 21401943 (Version 1)
Quarter: 2022Q4

REPORT INFORMATION
  Report Type: Spontaneous
  Country: FR (occurrence: FR)
  Receive Date: 20221003
  Receipt Date: 20221003
  Transmission Date: 20230113
  Serious: Yes (Hospitalization)
  Sender: FDA-Public Use
  Company Number: None

PATIENT
  Age: 71 Year
  Sex: Male
  Weight: 100 kg

DRUGS (7)
  1. TEGRETOL [Interacting]
     Active Substance: CARBAMAZEPINE
     Indication: Epilepsy
     Dosage: 90 MG, QD (40-0-50)
     Route: 048
  2. PHENOBARBITAL [Interacting]
     Active Substance: PHENOBARBITAL
     Indication: Epilepsy
     Dosage: 100 MG, Q12H
     Route: 048
     Dates: end: 202206
  3. PHENOBARBITAL [Interacting]
     Active Substance: PHENOBARBITAL
     Dosage: 50 MG, Q12H
     Route: 048
     Dates: start: 202206, end: 20220819
  4. PHENOBARBITAL [Interacting]
     Active Substance: PHENOBARBITAL
     Dosage: 50 MG, QD
     Route: 048
     Dates: start: 20220819, end: 20220819
  5. XARELTO [Interacting]
     Active Substance: RIVAROXABAN
     Indication: Atrial fibrillation
     Dosage: 20 MG, QD
     Route: 048
     Dates: start: 201908, end: 20220906
  6. CANDESARTAN [Concomitant]
     Active Substance: CANDESARTAN
     Indication: Hypertension
     Dosage: UNK
     Route: 065
  7. LEVOTHYROXINE [Concomitant]
     Active Substance: LEVOTHYROXINE
     Indication: Product used for unknown indication
     Dosage: 8 MG, QD (COMPRIME SECABLE )
     Route: 048

REACTIONS (2)
  - Drug interaction [Recovering/Resolving]
  - Ischaemic stroke [Recovering/Resolving]

NARRATIVE: CASE EVENT DATE: 20190801
